FAERS Safety Report 9007813 (Version 1)
Quarter: 2013Q1

REPORT INFORMATION
  Report Type: Spontaneous
  Country: US (occurrence: US)
  Receive Date: 20130111
  Receipt Date: 20130111
  Transmission Date: 20140127
  Serious: Yes (Death, Other)
  Sender: FDA-Public Use
  Company Number: US-009507513-1012USA00493

PATIENT
  Age: 50 Year
  Sex: Female
  Weight: 45.36 kg

DRUGS (4)
  1. SINGULAIR [Suspect]
     Indication: ASTHMA
     Route: 048
     Dates: start: 20090301, end: 20091206
  2. ADVAIR [Suspect]
     Indication: ASTHMA
     Dosage: 1 DF, Q12H
     Route: 055
     Dates: start: 20090301, end: 20091205
  3. POTASSIUM (UNSPECIFIED) [Concomitant]
  4. LEVOTHYROXINE SODIUM [Concomitant]

REACTIONS (2)
  - Asphyxia [Fatal]
  - Completed suicide [Fatal]
